FAERS Safety Report 6584742-8 (Version None)
Quarter: 2010Q1

REPORT INFORMATION
  Report Type: 
  Country: None (occurrence: None)
  Receive Date: 20100217
  Receipt Date: 20100210
  Transmission Date: 20100710
  Serious: Yes (Hospitalization)
  Sender: FDA-Public Use
  Company Number: PHHO2008CA10479

PATIENT
  Sex: Female
  Weight: 95 kg

DRUGS (1)
  1. CERTICAN [Suspect]
     Indication: HEART TRANSPLANT
     Dosage: 0.75 MG BID
     Route: 048
     Dates: start: 20080808

REACTIONS (2)
  - CARDIAC TAMPONADE [None]
  - HAEMOGLOBIN DECREASED [None]
